FAERS Safety Report 5061706-7 (Version None)
Quarter: 2006Q3

REPORT INFORMATION
  Report Type: 
  Country: None (occurrence: None)
  Receive Date: 20060720
  Receipt Date: 20060713
  Transmission Date: 20061208
  Serious: Yes (Other)
  Sender: FDA-Public Use
  Company Number: GBWYE208517JUL06

PATIENT
  Age: 69 Year
  Sex: Male

DRUGS (1)
  1. RAPAMUNE [Suspect]
     Indication: CHRONIC ALLOGRAFT NEPHROPATHY
     Dosage: INITIALLY REDUCED BUT NO DETAILS ORAL
     Route: 048
     Dates: start: 20051203, end: 20060301

REACTIONS (1)
  - CLOSTRIDIUM DIFFICILE COLITIS [None]
